FAERS Safety Report 10219670 (Version 1)
Quarter: 2014Q2

REPORT INFORMATION
  Report Type: Spontaneous
  Country: GB (occurrence: GB)
  Receive Date: 20140605
  Receipt Date: 20140605
  Transmission Date: 20141212
  Serious: Yes (Other)
  Sender: FDA-Public Use
  Company Number: GB-ACTAVIS-2014-11777

PATIENT
  Age: 66 Year
  Sex: Female

DRUGS (1)
  1. ACYCLOVIR (UNKNOWN) [Suspect]
     Indication: OPHTHALMIC HERPES ZOSTER
     Dosage: 800 MG, FIVE TIMES PER DAY
     Route: 048
     Dates: start: 20130918, end: 20130928

REACTIONS (3)
  - Hepatitis [Recovered/Resolved]
  - Abdominal pain [Recovered/Resolved]
  - Transaminases increased [Recovered/Resolved]
